FAERS Safety Report 19611413 (Version 3)
Quarter: 2022Q2

REPORT INFORMATION
  Report Type: Spontaneous
  Country: CA (occurrence: CA)
  Receive Date: 20210726
  Receipt Date: 20220502
  Transmission Date: 20220720
  Serious: Yes (Death, Hospitalization, Other)
  Sender: FDA-Public Use
  Company Number: CA-NAPPMUNDI-GBR-2021-0089121

PATIENT
  Age: 70 Year
  Sex: Male
  Weight: 144 kg

DRUGS (43)
  1. SENOKOT [Suspect]
     Active Substance: SENNOSIDES
     Indication: Product used for unknown indication
     Dosage: 17.2 MG, UNK
     Route: 065
  2. SENOKOT [Suspect]
     Active Substance: SENNOSIDES
     Dosage: 17.2 MG, UNK
     Route: 065
  3. DILAUDID [Suspect]
     Active Substance: HYDROMORPHONE HYDROCHLORIDE
     Indication: Product used for unknown indication
     Dosage: 2 DF, UNK
     Route: 042
  4. DILAUDID [Suspect]
     Active Substance: HYDROMORPHONE HYDROCHLORIDE
     Dosage: 2 DF, UNK
     Route: 042
  5. DILAUDID [Suspect]
     Active Substance: HYDROMORPHONE HYDROCHLORIDE
     Dosage: UNK
     Route: 042
  6. BUDESONIDE\FORMOTEROL [Suspect]
     Active Substance: BUDESONIDE\FORMOTEROL
     Indication: Product used for unknown indication
     Dosage: 2 DF (DOSAGE FORM TOTAL), UNK
     Route: 065
  7. BUDESONIDE\FORMOTEROL [Suspect]
     Active Substance: BUDESONIDE\FORMOTEROL
     Dosage: 2 DF, UNK
     Route: 065
  8. FLOMAX [Suspect]
     Active Substance: TAMSULOSIN HYDROCHLORIDE
     Indication: Product used for unknown indication
     Dosage: 0.4 MG, UNK
     Route: 065
  9. FLOMAX [Suspect]
     Active Substance: TAMSULOSIN HYDROCHLORIDE
     Dosage: 0.4 MG, UNK
     Route: 065
  10. MOMETASONE FUROATE [Suspect]
     Active Substance: MOMETASONE FUROATE
     Indication: Product used for unknown indication
     Dosage: UNK
     Route: 065
  11. GABAPENTIN [Suspect]
     Active Substance: GABAPENTIN
     Indication: Product used for unknown indication
     Dosage: 600 MG, DAILY (2 EVERY 1 DAYS)
     Route: 048
  12. GABAPENTIN [Suspect]
     Active Substance: GABAPENTIN
     Dosage: 600 MG, BID
     Route: 065
  13. GABAPENTIN [Suspect]
     Active Substance: GABAPENTIN
     Dosage: UNK
     Route: 065
  14. HALDOL [Suspect]
     Active Substance: HALOPERIDOL
     Indication: Product used for unknown indication
     Dosage: UNK
     Route: 042
  15. MEPOLIZUMAB [Suspect]
     Active Substance: MEPOLIZUMAB
     Indication: Asthma
     Dosage: 100 MG, UNK
     Route: 042
  16. MEPOLIZUMAB [Suspect]
     Active Substance: MEPOLIZUMAB
     Dosage: 100 MG, UNK
     Route: 065
  17. MEPOLIZUMAB [Suspect]
     Active Substance: MEPOLIZUMAB
     Dosage: UNK, MONTHLY
     Route: 065
  18. ROBINUL [Suspect]
     Active Substance: GLYCOPYRROLATE
     Indication: Product used for unknown indication
     Dosage: 0.4 MG, UNK
     Route: 065
  19. SODIUM CHLORIDE [Suspect]
     Active Substance: SODIUM CHLORIDE
     Indication: Product used for unknown indication
     Dosage: UNK
     Route: 065
  20. TIOTROPIUM BROMIDE [Suspect]
     Active Substance: TIOTROPIUM BROMIDE
     Indication: Product used for unknown indication
     Dosage: 2 DF, UNK
     Route: 065
  21. TYLENOL [Suspect]
     Active Substance: ACETAMINOPHEN
     Indication: Product used for unknown indication
     Dosage: 650 MG, UNK
     Route: 065
  22. VERSED [Suspect]
     Active Substance: MIDAZOLAM HYDROCHLORIDE
     Indication: Product used for unknown indication
     Dosage: 1 MG, UNK
     Route: 065
  23. FLUTICASONE PROPIONATE [Suspect]
     Active Substance: FLUTICASONE PROPIONATE
     Indication: Product used for unknown indication
     Dosage: UNK
     Route: 065
  24. MIDAZOLAM HYDROCHLORIDE [Suspect]
     Active Substance: MIDAZOLAM HYDROCHLORIDE
     Indication: Product used for unknown indication
     Dosage: 10 MG, UNK
     Route: 030
  25. MIDAZOLAM HYDROCHLORIDE [Suspect]
     Active Substance: MIDAZOLAM HYDROCHLORIDE
     Dosage: 1 MG, UNK
     Route: 030
  26. TAMSULOSIN HYDROCHLORIDE [Suspect]
     Active Substance: TAMSULOSIN HYDROCHLORIDE
     Indication: Product used for unknown indication
     Dosage: 0.4 MG, UNK
     Route: 065
  27. BISOPROLOL [Concomitant]
     Active Substance: BISOPROLOL
     Indication: Product used for unknown indication
     Dosage: 10 MG
     Route: 048
  28. LASIX [Concomitant]
     Active Substance: FUROSEMIDE
     Indication: Product used for unknown indication
     Dosage: 20 MG, DAILY
     Route: 065
  29. LASIX [Concomitant]
     Active Substance: FUROSEMIDE
     Dosage: 20 MG, BID
     Route: 065
  30. LASIX [Concomitant]
     Active Substance: FUROSEMIDE
     Dosage: 20 MG, BID
  31. LIPITOR [Concomitant]
     Active Substance: ATORVASTATIN CALCIUM
     Indication: Product used for unknown indication
     Dosage: 10 MG, DAILY
     Route: 048
  32. OMEPRAZOLE [Concomitant]
     Active Substance: OMEPRAZOLE
     Indication: Product used for unknown indication
     Dosage: 10 MG, DAILY
     Route: 048
  33. PERINDOPRIL [Concomitant]
     Active Substance: PERINDOPRIL
     Indication: Product used for unknown indication
     Dosage: 2 MG, DAILY
     Route: 048
  34. PREDNISONE [Concomitant]
     Active Substance: PREDNISONE
     Indication: Product used for unknown indication
     Dosage: 1 MG, DAILY
     Route: 048
  35. SPIRIVA [Concomitant]
     Active Substance: TIOTROPIUM BROMIDE MONOHYDRATE
     Indication: Product used for unknown indication
     Dosage: 1 DF, DAILY
     Route: 065
  36. ULORIC [Concomitant]
     Active Substance: FEBUXOSTAT
     Indication: Product used for unknown indication
     Dosage: UNK (1 EVERY 1 DAYS)
     Route: 048
  37. ULORIC [Concomitant]
     Active Substance: FEBUXOSTAT
     Dosage: UNK, DAILY
     Route: 065
  38. ULORIC [Concomitant]
     Active Substance: FEBUXOSTAT
     Dosage: UNK, DAILY
  39. TIOTROPIUM BROMIDE MONOHYDRATE [Concomitant]
     Active Substance: TIOTROPIUM BROMIDE MONOHYDRATE
     Indication: Product used for unknown indication
     Dosage: UNK
     Route: 065
  40. TIOTROPIUM BROMIDE MONOHYDRATE [Concomitant]
     Active Substance: TIOTROPIUM BROMIDE MONOHYDRATE
     Dosage: 2 DOSAGE FORM
  41. TIOTROPIUM BROMIDE MONOHYDRATE [Concomitant]
     Active Substance: TIOTROPIUM BROMIDE MONOHYDRATE
     Dosage: UNK, DAILY
     Route: 065
  42. BUDESONIDE\FORMOTEROL [Suspect]
     Active Substance: BUDESONIDE\FORMOTEROL
     Indication: Product used for unknown indication
     Dosage: 2 DF, UNK
     Route: 065
  43. PANTOPRAZOLE [Suspect]
     Active Substance: PANTOPRAZOLE
     Indication: Product used for unknown indication
     Dosage: 40 MG, UNK
     Route: 065

REACTIONS (35)
  - Anxiety [Fatal]
  - COVID-19 [Fatal]
  - COVID-19 pneumonia [Fatal]
  - Confusional state [Fatal]
  - Contusion [Fatal]
  - Deep vein thrombosis [Fatal]
  - Dyspnoea [Fatal]
  - Dyspnoea exertional [Fatal]
  - Dyspnoea paroxysmal nocturnal [Fatal]
  - General physical health deterioration [Fatal]
  - Hallucination [Fatal]
  - Hypokalaemia [Fatal]
  - Hyponatraemia [Fatal]
  - Hypoxia [Fatal]
  - Lymphadenopathy [Fatal]
  - Malaise [Fatal]
  - Myoclonus [Fatal]
  - Neuralgia [Fatal]
  - Neurotoxicity [Fatal]
  - Odynophagia [Fatal]
  - Oedema peripheral [Fatal]
  - Orthopnoea [Fatal]
  - Pneumonia [Fatal]
  - Productive cough [Fatal]
  - Pulmonary embolism [Fatal]
  - Pyrexia [Fatal]
  - Respiratory failure [Fatal]
  - Rhinorrhoea [Fatal]
  - Somnolence [Fatal]
  - Sputum discoloured [Fatal]
  - Tremor [Fatal]
  - Troponin increased [Fatal]
  - Umbilical hernia [Fatal]
  - Urinary incontinence [Fatal]
  - Wheezing [Fatal]
